FAERS Safety Report 20954923 (Version 1)
Quarter: 2022Q2

REPORT INFORMATION
  Report Type: Spontaneous
  Country: US (occurrence: None)
  Receive Date: 20220614
  Receipt Date: 20220614
  Transmission Date: 20220720
  Serious: No
  Sender: FDA-Public Use
  Company Number: US-MDD US Operations-MDD202108-001684

PATIENT
  Age: 69 Year
  Sex: Male

DRUGS (12)
  1. APOKYN [Suspect]
     Active Substance: APOMORPHINE HYDROCHLORIDE
     Indication: Parkinson^s disease
     Route: 058
     Dates: start: 20210618, end: 20210811
  2. Carb Levo [Concomitant]
     Dosage: NOT PROVIDED
  3. SELEGILINE [Concomitant]
     Active Substance: SELEGILINE
     Dosage: NOT PROVIDED
  4. Osmolex [Concomitant]
     Dosage: NOT PROVIDED
  5. ADVAIR HFA [Concomitant]
     Active Substance: FLUTICASONE PROPIONATE\SALMETEROL XINAFOATE
     Dosage: NOT PROVIDED
  6. Nourienz [Concomitant]
     Dosage: NOT PROVIDED
  7. Sinesteride [Concomitant]
     Dosage: NOT PROVIDED
  8. ENTACAPONE [Concomitant]
     Active Substance: ENTACAPONE
     Dosage: NOT PROVIDED
  9. FLOMAX [Concomitant]
     Active Substance: TAMSULOSIN HYDROCHLORIDE
     Dosage: NOT PROVIDED
  10. AMLODIPINE [Concomitant]
     Active Substance: AMLODIPINE BESYLATE
     Dosage: NOT PROVIDED
  11. NORTHERA [Concomitant]
     Active Substance: DROXIDOPA
     Dosage: NOT PROVIDED
  12. ASPIRIN [Concomitant]
     Active Substance: ASPIRIN
     Dosage: NOT PROVIDED

REACTIONS (2)
  - Abdominal pain [Recovered/Resolved]
  - Diarrhoea [Recovered/Resolved]

NARRATIVE: CASE EVENT DATE: 20210101
